FAERS Safety Report 8607464-8 (Version None)
Quarter: 2012Q3

REPORT INFORMATION
  Report Type: 
  Country: None (occurrence: None)
  Receive Date: 20120821
  Receipt Date: 20120807
  Transmission Date: 20120928
  Serious: No
  Sender: FDA-Public Use
  Company Number: US-JNJFOC-20120804502

PATIENT
  Sex: Female

DRUGS (16)
  1. DURAGESIC-100 [Suspect]
     Route: 062
     Dates: end: 20120701
  2. NEURONTIN [Concomitant]
     Route: 048
  3. PROVIGIL [Concomitant]
     Route: 065
  4. ESTRATEST [Concomitant]
     Route: 065
  5. DURAGESIC-100 [Suspect]
     Route: 062
     Dates: start: 20120702
  6. VAGISIL [Concomitant]
     Route: 065
  7. CLONOPIN [Concomitant]
     Route: 048
  8. LEVOXYL [Concomitant]
     Route: 048
  9. MIRALAX [Concomitant]
     Route: 065
  10. DURAGESIC-100 [Suspect]
     Indication: NEURALGIA
     Route: 062
     Dates: start: 20000101
  11. TRAZODONE HYDROCHLORIDE [Concomitant]
     Route: 048
  12. PROTONIX [Concomitant]
     Route: 065
  13. EFFEXOR [Concomitant]
     Route: 048
  14. NEURONTIN [Concomitant]
     Route: 048
  15. PERCOCET [Concomitant]
     Route: 048
  16. PROVERA [Concomitant]
     Route: 065

REACTIONS (5)
  - WRONG TECHNIQUE IN DRUG USAGE PROCESS [None]
  - WITHDRAWAL SYNDROME [None]
  - PRODUCT QUALITY ISSUE [None]
  - HYPERHIDROSIS [None]
  - PAIN [None]
